FAERS Safety Report 21691005 (Version 1)
Quarter: 2022Q4

REPORT INFORMATION
  Report Type: Spontaneous
  Country: US (occurrence: US)
  Receive Date: 20221207
  Receipt Date: 20221207
  Transmission Date: 20230113
  Serious: Yes (Death, Other)
  Sender: FDA-Public Use
  Company Number: US-BRISTOL-MYERS SQUIBB COMPANY-2022-147976

PATIENT
  Age: 75 Year
  Sex: Female
  Weight: 83.460 kg

DRUGS (1)
  1. REVLIMID [Suspect]
     Active Substance: LENALIDOMIDE
     Indication: Plasma cell myeloma
     Dosage: DAILY ON DAYS 1-28 EVERY 8 DAYS
     Route: 048
     Dates: start: 20200821

REACTIONS (2)
  - Death [Fatal]
  - Off label use [Unknown]
